FAERS Safety Report 8528974-8 (Version None)
Quarter: 2012Q3

REPORT INFORMATION
  Report Type: 
  Country: None (occurrence: None)
  Receive Date: 20120723
  Receipt Date: 20120719
  Transmission Date: 20120928
  Serious: No
  Sender: FDA-Public Use
  Company Number: US-PFIZER INC-2012175573

PATIENT
  Sex: Female

DRUGS (1)
  1. PRISTIQ [Suspect]
     Dosage: 100 MG, UNK
     Dates: end: 20120701

REACTIONS (3)
  - CRYING [None]
  - WITHDRAWAL SYNDROME [None]
  - DEPRESSED MOOD [None]
